FAERS Safety Report 17745573 (Version 1)
Quarter: 2020Q2

REPORT INFORMATION
  Report Type: Spontaneous
  Country: US (occurrence: US)
  Receive Date: 20200505
  Receipt Date: 20200505
  Transmission Date: 20200714
  Serious: No
  Sender: FDA-Public Use
  Company Number: US-KARYOPHARM-2020KPT000433

PATIENT

DRUGS (1)
  1. XPOVIO [Suspect]
     Active Substance: SELINEXOR
     Indication: PLASMA CELL MYELOMA
     Dosage: 80 MG, 2X/WEEK
     Route: 048
     Dates: start: 20200412, end: 20200429

REACTIONS (3)
  - Rhinorrhoea [Unknown]
  - Neuropathy peripheral [Unknown]
  - Back pain [Unknown]

NARRATIVE: CASE EVENT DATE: 202004
